FAERS Safety Report 10878971 (Version 1)
Quarter: 2015Q1

REPORT INFORMATION
  Report Type: Other
  Country: GB (occurrence: GB)
  Receive Date: 20150302
  Receipt Date: 20150302
  Transmission Date: 20150721
  Serious: Yes (Death, Hospitalization, Other)
  Sender: FDA-Public Use
  Company Number: GB-PERRIGO-15GB002363

PATIENT
  Age: 31 Year
  Sex: Female

DRUGS (6)
  1. IBUPROFEN 16028/0027 200 MG [Suspect]
     Active Substance: IBUPROFEN
     Indication: EAR PAIN
     Dosage: UNK
     Route: 065
  2. OXYCODONE [Concomitant]
     Active Substance: OXYCODONE
     Indication: EAR PAIN
     Dosage: UNK
     Route: 065
  3. PARACETAMOL 16028/0012 500 MG [Suspect]
     Active Substance: ACETAMINOPHEN
     Indication: EAR PAIN
     Dosage: 2 DF,  EVERY 2 HOURS
     Route: 048
     Dates: start: 201410
  4. PARACETAMOL 16028/0012 500 MG [Suspect]
     Active Substance: ACETAMINOPHEN
     Indication: ABDOMINAL PAIN
     Dosage: UNK
     Route: 065
     Dates: start: 201407
  5. ZOPICLONE [Suspect]
     Active Substance: ZOPICLONE
     Indication: ABDOMINAL PAIN
     Dosage: UNK
     Route: 065
  6. ZOPICLONE [Suspect]
     Active Substance: ZOPICLONE
     Indication: SLEEP DISORDER

REACTIONS (3)
  - Lung disorder [Fatal]
  - Hepatic congestion [Not Recovered/Not Resolved]
  - Overdose [Fatal]

NARRATIVE: CASE EVENT DATE: 201407
